FAERS Safety Report 8781269 (Version 1)
Quarter: 2012Q4

REPORT INFORMATION
  Report Type: 
  Country: AR (occurrence: AR)
  Receive Date: 20120913
  Receipt Date: 20120913
  Transmission Date: 20130627
  Serious: Yes (Other)
  Sender: FDA-Public Use
  Company Number: PHHY2012AR078880

PATIENT
  Age: 10 Year
  Sex: Male

DRUGS (2)
  1. CARBAMAZEPINE [Suspect]
     Dosage: 15 mg/kg, UNK
     Route: 048
  2. CARBAMAZEPINE [Suspect]
     Dosage: 30 mg/kg, UNK
     Route: 048

REACTIONS (11)
  - Lennox-Gastaut syndrome [Unknown]
  - Partial seizures [Unknown]
  - Grand mal convulsion [Unknown]
  - Tonic convulsion [Not Recovered/Not Resolved]
  - Petit mal epilepsy [Not Recovered/Not Resolved]
  - Myoclonus [Unknown]
  - Motor dysfunction [Recovered/Resolved]
  - Gait disturbance [Unknown]
  - Hyperkinesia [Unknown]
  - Abnormal behaviour [Not Recovered/Not Resolved]
  - Aggression [Unknown]
